FAERS Safety Report 9858626 (Version 1)
Quarter: 2014Q1

REPORT INFORMATION
  Report Type: Spontaneous
  Country: US (occurrence: None)
  Receive Date: 20140130
  Receipt Date: 20140130
  Transmission Date: 20141002
  Serious: Yes (Hospitalization)
  Sender: FDA-Public Use
  Company Number: None

PATIENT
  Age: 62 Year
  Sex: Female
  Weight: 51 kg

DRUGS (3)
  1. ARIPIPRAZOLE [Suspect]
     Indication: SCHIZOPHRENIA, PARANOID TYPE
     Dosage: BEDTIME
     Route: 048
     Dates: start: 20131003, end: 20131207
  2. LORAZEPAM [Concomitant]
  3. LEVOTHYROXINE [Concomitant]

REACTIONS (1)
  - Neutropenia [None]
